FAERS Safety Report 4850783-1 (Version None)
Quarter: 2005Q4

REPORT INFORMATION
  Report Type: 
  Country: None (occurrence: None)
  Receive Date: 20051212
  Receipt Date: 20051206
  Transmission Date: 20060501
  Serious: Yes (Life-Threatening, Hospitalization)
  Sender: FDA-Public Use
  Company Number: 2005GB02376

PATIENT
  Age: 57 Year
  Sex: Male

DRUGS (5)
  1. OMEPRAZOLE [Suspect]
     Indication: STOMACH DISCOMFORT
     Route: 048
     Dates: start: 20051027
  2. OMEPRAZOLE [Interacting]
     Route: 048
  3. WARFARIN SODIUM [Interacting]
     Indication: DEEP VEIN THROMBOSIS
     Route: 048
     Dates: start: 19800101
  4. WARFARIN SODIUM [Interacting]
     Indication: PULMONARY EMBOLISM
     Route: 048
     Dates: start: 19800101
  5. CO-CODAMOL [Concomitant]
     Route: 065

REACTIONS (4)
  - DRUG INTERACTION [None]
  - HAEMOGLOBIN ABNORMAL [None]
  - HEPATOMEGALY [None]
  - JAUNDICE ACHOLURIC [None]
